FAERS Safety Report 6273330-9 (Version None)
Quarter: 2009Q3

REPORT INFORMATION
  Report Type: 
  Country: None (occurrence: None)
  Receive Date: 20090715
  Receipt Date: 20090703
  Transmission Date: 20100115
  Serious: Yes (Hospitalization)
  Sender: FDA-Public Use
  Company Number: 8048797

PATIENT
  Age: 11 Year
  Sex: Male

DRUGS (15)
  1. LEVETIRACETAM [Suspect]
     Dosage: 1500 MG 1/D
  2. CLOBAZAM [Suspect]
     Dosage: 20 MG 1/D
  3. OXCARBAZEPINE [Suspect]
     Dosage: 2400 MG 1/D
  4. RUFINAMIDE [Suspect]
     Indication: DROP ATTACKS
     Dosage: 1200 MG 1/D PO
     Route: 048
  5. RUFINAMIDE [Suspect]
     Indication: LEARNING DISABILITY
     Dosage: 1200 MG 1/D PO
     Route: 048
  6. RUFINAMIDE [Suspect]
     Indication: DROP ATTACKS
     Dosage: 600 MG 2/D; PO
     Route: 048
  7. RUFINAMIDE [Suspect]
     Indication: LEARNING DISABILITY
     Dosage: 600 MG 2/D; PO
     Route: 048
  8. RUFINAMIDE [Suspect]
     Indication: DROP ATTACKS
     Dosage: 800 MG 2/D; PO
     Route: 048
  9. RUFINAMIDE [Suspect]
     Indication: LEARNING DISABILITY
     Dosage: 800 MG 2/D; PO
     Route: 048
  10. RUFINAMIDE [Suspect]
     Indication: DROP ATTACKS
     Dosage: 1200 MG 1/D; PO
     Route: 048
  11. RUFINAMIDE [Suspect]
     Indication: LEARNING DISABILITY
     Dosage: 1200 MG 1/D; PO
     Route: 048
  12. RUFINAMIDE [Suspect]
     Indication: DROP ATTACKS
     Dosage: 600 MG 2/D; PO
     Route: 048
  13. RUFINAMIDE [Suspect]
     Indication: LEARNING DISABILITY
     Dosage: 600 MG 2/D; PO
     Route: 048
  14. RUFINAMIDE [Suspect]
     Indication: DROP ATTACKS
     Dosage: 800 MG 2/D, PO
     Route: 048
  15. RUFINAMIDE [Suspect]
     Indication: LEARNING DISABILITY
     Dosage: 800 MG 2/D, PO
     Route: 048

REACTIONS (3)
  - ABNORMAL BEHAVIOUR [None]
  - AGGRESSION [None]
  - DRUG INTERACTION [None]
